FAERS Safety Report 7167244-X (Version None)
Quarter: 2010Q4

REPORT INFORMATION
  Report Type: 
  Country: None (occurrence: None)
  Receive Date: 20101213
  Receipt Date: 20101213
  Transmission Date: 20110411
  Serious: Yes (Other)
  Sender: FDA-Public Use
  Company Number: None

PATIENT
  Age: 32 Year
  Sex: Female
  Weight: 45.3597 kg

DRUGS (1)
  1. RISPERIDONE .5 MG MYLAN [Suspect]
     Indication: PSYCHOTIC DISORDER
     Dosage: .25 MG /LESS -LESS THAN PREACRI DAILY PO
     Route: 048
     Dates: start: 20101010, end: 20101013

REACTIONS (6)
  - AGGRESSION [None]
  - AGITATION [None]
  - ANGER [None]
  - HOSTILITY [None]
  - HYPOPHAGIA [None]
  - SLEEP DISORDER [None]
